FAERS Safety Report 14229642 (Version 1)
Quarter: 2017Q4

REPORT INFORMATION
  Report Type: Spontaneous
  Country: JP (occurrence: JP)
  Receive Date: 20171128
  Receipt Date: 20171128
  Transmission Date: 20180321
  Serious: Yes (Other)
  Sender: FDA-Public Use
  Company Number: GXJP2017JP001782

PATIENT
  Age: 45 Year
  Sex: Female
  Weight: 45 kg

DRUGS (6)
  1. AMIODARONE HYDROCHLORIDE. [Suspect]
     Active Substance: AMIODARONE HYDROCHLORIDE
     Indication: SUPRAVENTRICULAR TACHYCARDIA
     Dosage: 100 MG, QD
     Route: 065
  2. BISOPROLOL [Suspect]
     Active Substance: BISOPROLOL
     Indication: SUPRAVENTRICULAR TACHYCARDIA
     Dosage: 1.25 MG, QD
     Route: 065
  3. TELMISARTAN. [Suspect]
     Active Substance: TELMISARTAN
     Indication: ACUTE CORONARY SYNDROME
  4. TELMISARTAN. [Suspect]
     Active Substance: TELMISARTAN
     Indication: SUPRAVENTRICULAR TACHYCARDIA
     Dosage: 40 MG, QD
     Route: 065
  5. AMIODARONE HYDROCHLORIDE. [Suspect]
     Active Substance: AMIODARONE HYDROCHLORIDE
     Indication: ACUTE CORONARY SYNDROME
  6. BISOPROLOL [Suspect]
     Active Substance: BISOPROLOL
     Indication: ACUTE CORONARY SYNDROME

REACTIONS (7)
  - Dysphagia [Recovering/Resolving]
  - Tremor [Recovering/Resolving]
  - Palpitations [Recovering/Resolving]
  - Hyperhidrosis [Recovering/Resolving]
  - Adrenal insufficiency [Recovering/Resolving]
  - Hyperthyroidism [Recovering/Resolving]
  - Malaise [Recovering/Resolving]
